FAERS Safety Report 20420634 (Version 1)
Quarter: 2022Q1

REPORT INFORMATION
  Report Type: Report from Study
  Country: US (occurrence: US)
  Receive Date: 20220203
  Receipt Date: 20220203
  Transmission Date: 20220424
  Serious: Yes (Other)
  Sender: FDA-Public Use
  Company Number: US-GLAXOSMITHKLINE-US2022AMR015699

PATIENT
  Age: 67 Year
  Sex: Female

DRUGS (1)
  1. BELANTAMAB MAFODOTIN [Suspect]
     Active Substance: BELANTAMAB MAFODOTIN
     Indication: Plasma cell myeloma
     Dosage: UNK
     Dates: start: 20210126

REACTIONS (8)
  - Blindness [Unknown]
  - Vision blurred [Not Recovered/Not Resolved]
  - Visual impairment [Unknown]
  - Panic reaction [Unknown]
  - Keratopathy [Not Recovered/Not Resolved]
  - Eye pain [Unknown]
  - Sleep disorder due to a general medical condition [Unknown]
  - Impaired driving ability [Unknown]
